FAERS Safety Report 18047231 (Version 1)
Quarter: 2020Q3

REPORT INFORMATION
  Report Type: Spontaneous
  Country: DK (occurrence: DK)
  Receive Date: 20200720
  Receipt Date: 20200720
  Transmission Date: 20201103
  Serious: Yes (Hospitalization)
  Sender: FDA-Public Use
  Company Number: DK-B.I. PHARMACEUTICALS,INC./RIDGEFIELD-2020-12-036394

PATIENT
  Age: 53 Year
  Sex: Male

DRUGS (7)
  1. SPARKAL [Concomitant]
     Active Substance: AMILORIDE HYDROCHLORIDE
     Indication: HYPERTENSION
     Dosage: STRENGTH: 25 + 2,5 MG.
     Route: 048
     Dates: start: 20181213
  2. BETOLVEX [CYANOCOBALAMIN?TANNIN COMPLEX] [Concomitant]
     Indication: VITAMIN B12 DEFICIENCY
     Dosage: STRENGTH: 1 MG.
     Route: 048
  3. NOVORAPID [Concomitant]
     Active Substance: INSULIN ASPART
     Indication: DIABETES MELLITUS
     Dosage: STRENGTH: 100 U/ML.?DOSE: UNKNOWN
     Route: 058
  4. KALIUMKLORID ORIFARM [Concomitant]
     Indication: PRODUCT USED FOR UNKNOWN INDICATION
     Dosage: STRENGTH: 750 MG.?DOSE: UKENDT.
     Route: 048
  5. FRAGMIN [Concomitant]
     Active Substance: DALTEPARIN SODIUM
     Indication: PRODUCT USED FOR UNKNOWN INDICATION
     Dosage: STRENGTH: UKENDT.?DOSE: UKENDT.
     Route: 058
  6. PANCILLIN [PHENOXYMETHYLPENICILLIN] [Concomitant]
     Indication: ERYSIPELAS
     Dosage: STRENGTH: 1 MILL. IE.
     Route: 048
     Dates: start: 20200625, end: 20200702
  7. SYNJARDY [Suspect]
     Active Substance: EMPAGLIFLOZIN\METFORMIN HYDROCHLORIDE
     Indication: TYPE 2 DIABETES MELLITUS
     Dosage: STRENGTH: 12,5 MG/1000 MG.
     Route: 048
     Dates: start: 20180612, end: 202006

REACTIONS (1)
  - Ketoacidosis [Recovering/Resolving]

NARRATIVE: CASE EVENT DATE: 20200629
